FAERS Safety Report 7871731-6 (Version None)
Quarter: 2011Q4

REPORT INFORMATION
  Report Type: 
  Country: None (occurrence: None)
  Receive Date: 20111029
  Receipt Date: 20110307
  Transmission Date: 20120403
  Serious: Yes (Other)
  Sender: FDA-Public Use
  Company Number: US-AMGEN-USASP2011012697

PATIENT
  Sex: Male

DRUGS (4)
  1. FOLIC ACID [Concomitant]
  2. PREDNISONE [Concomitant]
     Dosage: 1 MG, QD
  3. ENBREL [Suspect]
     Indication: RHEUMATOID ARTHRITIS
     Dosage: 50 MG, QWK
  4. METHOTREXATE [Concomitant]
     Dosage: 8 MG, QWK

REACTIONS (3)
  - RESPIRATORY TRACT INFECTION [None]
  - RASH [None]
  - VASCULITIS [None]
